FAERS Safety Report 23702061 (Version 1)
Quarter: 2024Q2

REPORT INFORMATION
  Report Type: Spontaneous
  Country: US (occurrence: None)
  Receive Date: 20240402
  Receipt Date: 20240402
  Transmission Date: 20240716
  Serious: Yes (Hospitalization)
  Sender: FDA-Public Use
  Company Number: None

PATIENT
  Sex: Male

DRUGS (1)
  1. PIRFENIDONE [Suspect]
     Active Substance: PIRFENIDONE
     Indication: Pulmonary fibrosis
     Dosage: DOSE/AMOUNT, FREQUENCY: TAKE 1 TABLET BY MOUTH 3 TIMES A DAY FOR 7 DAYS, THEN TAKE 2 TABLETS BY MOUT
     Route: 048
     Dates: start: 202205

REACTIONS (2)
  - Cardiac pacemaker insertion [None]
  - Sinus operation [None]
